FAERS Safety Report 7711559-0 (Version None)
Quarter: 2011Q3

REPORT INFORMATION
  Report Type: 
  Country: None (occurrence: None)
  Receive Date: 20110826
  Receipt Date: 20110819
  Transmission Date: 20111222
  Serious: Yes (Life-Threatening, Other)
  Sender: FDA-Public Use
  Company Number: GB-ABBOTT-11P-167-0836269-00

PATIENT
  Age: 7 Month
  Sex: Male

DRUGS (2)
  1. OXYGEN [Concomitant]
     Indication: PRODUCT USED FOR UNKNOWN INDICATION
  2. VALPROATE SODIUM [Suspect]
     Indication: CONVULSION
     Route: 065
     Dates: start: 20110307, end: 20110321

REACTIONS (2)
  - PANCREATITIS [None]
  - CARDIAC ARREST [None]
